FAERS Safety Report 11489444 (Version 1)
Quarter: 2015Q3

REPORT INFORMATION
  Report Type: Spontaneous
  Country: US (occurrence: US)
  Receive Date: 20150909
  Receipt Date: 20150909
  Transmission Date: 20151125
  Serious: Yes (Hospitalization)
  Sender: FDA-Public Use
  Company Number: US-ASTELLAS-2015US029067

PATIENT
  Sex: Female

DRUGS (1)
  1. MYRBETRIQ [Suspect]
     Active Substance: MIRABEGRON
     Indication: HYPERTONIC BLADDER
     Route: 065
     Dates: start: 20150810, end: 20150811

REACTIONS (4)
  - Intestinal obstruction [Unknown]
  - Blood pressure increased [Unknown]
  - Drug ineffective [Unknown]
  - Atrial fibrillation [Unknown]
